FAERS Safety Report 18500543 (Version 1)
Quarter: 2020Q4

REPORT INFORMATION
  Report Type: Spontaneous
  Country: US (occurrence: US)
  Receive Date: 20201112
  Receipt Date: 20201112
  Transmission Date: 20210114
  Serious: Yes (Hospitalization)
  Sender: FDA-Public Use
  Company Number: None

PATIENT
  Age: 76 Year
  Sex: Female
  Weight: 114.75 kg

DRUGS (15)
  1. VITAMIN B12 1000MCG ORAL [Concomitant]
  2. CYCLOBENZAPRINE HCL 10MG ORAL [Concomitant]
  3. OMEPRAZOLE - SODIUM BICARBONATE40-1100MH ORAL [Concomitant]
  4. XGEVA 120MG/ 1.7 SUBCUTANEOUS [Concomitant]
  5. ROSUVASTATIN 20MG ORAL [Concomitant]
  6. IBRANCE [Suspect]
     Active Substance: PALBOCICLIB
     Indication: BREAST CANCER FEMALE
     Route: 048
     Dates: start: 20190517
  7. MULTIVITAMIN ORAL [Concomitant]
  8. CALCIUM 600 +D 600-400MG ORAL [Concomitant]
  9. BISACODYL ED 5MG ORAL [Concomitant]
  10. ONDANSETRON 4MG ORAL [Concomitant]
  11. OXYCODONE-ACETAMINOPHEN 5-325MG ORAL [Concomitant]
  12. LETROZOLE. [Suspect]
     Active Substance: LETROZOLE
     Indication: BREAST CANCER FEMALE
     Route: 048
     Dates: start: 20190517
  13. PLAVIX 75MG ORAL [Concomitant]
  14. DOCUSATE SODIUM 100MG ORAL [Concomitant]
  15. FERROUS SULFATE 235MG ORAL [Concomitant]

REACTIONS (1)
  - COVID-19 [None]

NARRATIVE: CASE EVENT DATE: 20201112
